FAERS Safety Report 8331224-9 (Version None)
Quarter: 2012Q2

REPORT INFORMATION
  Report Type: 
  Country: None (occurrence: None)
  Receive Date: 20120502
  Receipt Date: 20120413
  Transmission Date: 20120825
  Serious: No
  Sender: FDA-Public Use
  Company Number: US-AMGEN-USASP2011006826

PATIENT
  Age: 54 Year
  Sex: Male
  Weight: 92.971 kg

DRUGS (8)
  1. FATTY ACIDS NOS [Concomitant]
     Dosage: UNK UNK, QD
  2. VITAMIN D2 + CALCIUM               /00188401/ [Concomitant]
     Dosage: 600 MG, BID
     Route: 048
  3. VITAMIN D [Concomitant]
     Dosage: 5000 IU, QOD
     Route: 048
  4. VITAMIN E                          /00110501/ [Concomitant]
     Dosage: 1000 MG, QD
     Route: 048
  5. PROBIOTIC [Concomitant]
     Dosage: UNK UNK, QD
     Route: 048
  6. ENBREL [Suspect]
     Indication: PSORIATIC ARTHROPATHY
     Dosage: 50 MG, QWK
     Route: 058
     Dates: start: 20100601
  7. OMEGA 3                            /01334101/ [Concomitant]
     Dosage: UNK UNK, QD
     Route: 048
  8. VITAMIN C                          /00008001/ [Concomitant]
     Dosage: 1000 MG, QD
     Route: 048

REACTIONS (1)
  - TENDON RUPTURE [None]
